FAERS Safety Report 25534542 (Version 1)
Quarter: 2025Q3

REPORT INFORMATION
  Report Type: Spontaneous
  Country: EU (occurrence: EU)
  Receive Date: 20250709
  Receipt Date: 20250709
  Transmission Date: 20251020
  Serious: Yes (Other)
  Sender: MYLAN
  Company Number: None

PATIENT
  Age: 77 Year
  Sex: Male
  Weight: 60 kg

DRUGS (12)
  1. DABIGATRAN [Suspect]
     Active Substance: DABIGATRAN
     Indication: Pulmonary embolism
     Dosage: 150 MILLIGRAM, QD (DABIGATRAN 150MG 1 TABLET DAILY)
     Dates: start: 20250207, end: 20250217
  2. DABIGATRAN [Suspect]
     Active Substance: DABIGATRAN
     Dosage: 150 MILLIGRAM, QD (DABIGATRAN 150MG 1 TABLET DAILY)
     Route: 048
     Dates: start: 20250207, end: 20250217
  3. DABIGATRAN [Suspect]
     Active Substance: DABIGATRAN
     Dosage: 150 MILLIGRAM, QD (DABIGATRAN 150MG 1 TABLET DAILY)
     Route: 048
     Dates: start: 20250207, end: 20250217
  4. DABIGATRAN [Suspect]
     Active Substance: DABIGATRAN
     Dosage: 150 MILLIGRAM, QD (DABIGATRAN 150MG 1 TABLET DAILY)
     Dates: start: 20250207, end: 20250217
  5. EDOXABAN TOSYLATE [Suspect]
     Active Substance: EDOXABAN TOSYLATE
     Indication: Pulmonary embolism
     Dosage: 60 MILLIGRAM, QD (LIXIANA 60 MG 1 TABLET DAILY)
     Dates: start: 20241103, end: 20241103
  6. EDOXABAN TOSYLATE [Suspect]
     Active Substance: EDOXABAN TOSYLATE
     Dosage: 60 MILLIGRAM, QD (LIXIANA 60 MG 1 TABLET DAILY)
     Route: 048
     Dates: start: 20241103, end: 20241103
  7. EDOXABAN TOSYLATE [Suspect]
     Active Substance: EDOXABAN TOSYLATE
     Dosage: 60 MILLIGRAM, QD (LIXIANA 60 MG 1 TABLET DAILY)
     Route: 048
     Dates: start: 20241103, end: 20241103
  8. EDOXABAN TOSYLATE [Suspect]
     Active Substance: EDOXABAN TOSYLATE
     Dosage: 60 MILLIGRAM, QD (LIXIANA 60 MG 1 TABLET DAILY)
     Dates: start: 20241103, end: 20241103
  9. ELIQUIS [Suspect]
     Active Substance: APIXABAN
     Indication: Pulmonary embolism
  10. ELIQUIS [Suspect]
     Active Substance: APIXABAN
     Route: 048
  11. ELIQUIS [Suspect]
     Active Substance: APIXABAN
     Route: 048
  12. ELIQUIS [Suspect]
     Active Substance: APIXABAN

REACTIONS (2)
  - Dyspnoea exertional [Recovering/Resolving]
  - Headache [Recovered/Resolved]

NARRATIVE: CASE EVENT DATE: 20241103
